FAERS Safety Report 11463640 (Version 1)
Quarter: 2015Q3

REPORT INFORMATION
  Report Type: Spontaneous
  Country: US (occurrence: US)
  Receive Date: 20150831
  Receipt Date: 20150831
  Transmission Date: 20151125
  Serious: No
  Sender: FDA-Public Use
  Company Number: US-ELI_LILLY_AND_COMPANY-US201104001726

PATIENT
  Sex: Female

DRUGS (2)
  1. CYMBALTA [Suspect]
     Active Substance: DULOXETINE HYDROCHLORIDE
     Dosage: 30 MG, OTHER
     Dates: start: 20110401
  2. CYMBALTA [Suspect]
     Active Substance: DULOXETINE HYDROCHLORIDE
     Indication: MAJOR DEPRESSION
     Dosage: 30 MG, QD
     Dates: start: 200711

REACTIONS (6)
  - Hyperkeratosis [Unknown]
  - Eczema [Unknown]
  - Hypoaesthesia oral [Unknown]
  - Diarrhoea [Unknown]
  - Intentional product misuse [Recovered/Resolved]
  - Fatigue [Unknown]
